FAERS Safety Report 10094394 (Version 2)
Quarter: 2014Q2

REPORT INFORMATION
  Report Type: Spontaneous
  Country: MX (occurrence: None)
  Receive Date: 20140418
  Receipt Date: 20140516
  Transmission Date: 20141212
  Serious: Yes (Death, Other)
  Sender: FDA-Public Use
  Company Number: NSR_01544_2014

PATIENT
  Sex: Male

DRUGS (5)
  1. ALLOPURINOL (ALLOPURINOL) [Suspect]
     Indication: PRODUCT USED FOR UNKNOWN INDICATION
  2. FUROSEMIDE [Concomitant]
  3. CALCITRIOL [Concomitant]
  4. ENALAPRIL [Concomitant]
  5. FERROUS FUMARATE [Concomitant]

REACTIONS (7)
  - Drug hypersensitivity [None]
  - Acute hepatic failure [None]
  - Respiratory failure [None]
  - Metabolic acidosis [None]
  - Lichenoid keratosis [None]
  - Blood glucose increased [None]
  - Lung infiltration [None]
